FAERS Safety Report 7145734-3 (Version None)
Quarter: 2010Q4

REPORT INFORMATION
  Report Type: 
  Country: None (occurrence: None)
  Receive Date: 20101208
  Receipt Date: 20101203
  Transmission Date: 20110411
  Serious: Yes (Other)
  Sender: FDA-Public Use
  Company Number: A0897613A

PATIENT
  Age: 17 Year
  Sex: Female

DRUGS (1)
  1. NICODERM CQ [Suspect]
     Indication: SMOKING CESSATION THERAPY
     Route: 062
     Dates: start: 20101202, end: 20101202

REACTIONS (13)
  - ABNORMAL BEHAVIOUR [None]
  - DEPRESSED LEVEL OF CONSCIOUSNESS [None]
  - DISSOCIATION [None]
  - DIZZINESS [None]
  - DRUG ADMINISTRATION ERROR [None]
  - FEELING ABNORMAL [None]
  - INTENTIONAL DRUG MISUSE [None]
  - LETHARGY [None]
  - MALAISE [None]
  - NAUSEA [None]
  - RESPIRATION ABNORMAL [None]
  - SPEECH DISORDER [None]
  - VOMITING [None]
